FAERS Safety Report 5848075-7 (Version None)
Quarter: 2008Q3

REPORT INFORMATION
  Report Type: 
  Country: None (occurrence: None)
  Receive Date: 20080814
  Receipt Date: 20080814
  Transmission Date: 20090109
  Serious: Yes (Hospitalization)
  Sender: FDA-Public Use
  Company Number: None

PATIENT
  Sex: Female
  Weight: 43.95 kg

DRUGS (6)
  1. SUNITINIB [Suspect]
     Indication: HEAD AND NECK CANCER
     Dosage: 37.5MG/DAILY/PO/QD/PILL
     Route: 048
     Dates: start: 20071121, end: 20071226
  2. NEURONTIN [Concomitant]
  3. OXYCODONE HCL [Concomitant]
  4. PREDNISONE TAB [Concomitant]
  5. PRILOSEC [Concomitant]
  6. NEXIUM [Concomitant]

REACTIONS (4)
  - FALL [None]
  - FATIGUE [None]
  - MUCOSAL INFLAMMATION [None]
  - PYREXIA [None]
